FAERS Safety Report 6056891-4 (Version None)
Quarter: 2009Q1

REPORT INFORMATION
  Report Type: 
  Country: None (occurrence: None)
  Receive Date: 20090129
  Receipt Date: 20090119
  Transmission Date: 20090719
  Serious: Yes (Hospitalization)
  Sender: FDA-Public Use
  Company Number: B0554977A

PATIENT
  Age: 77 Year
  Sex: Female

DRUGS (12)
  1. MALARONE [Suspect]
     Indication: DRUG USE FOR UNKNOWN INDICATION
     Route: 048
     Dates: start: 20081101, end: 20081120
  2. REQUIP [Concomitant]
     Dosage: .5MG TWICE PER DAY
     Route: 065
  3. TRIVASTAL [Concomitant]
     Dosage: 50MG TWICE PER DAY
     Route: 065
  4. KARDEGIC [Concomitant]
     Dosage: 75MG PER DAY
     Route: 065
  5. DAONIL [Concomitant]
     Dosage: 5MG TWICE PER DAY
     Route: 065
  6. METFORMIN HCL [Concomitant]
     Dosage: 850MG THREE TIMES PER DAY
     Route: 065
  7. TRIATEC [Concomitant]
     Dosage: 5MG PER DAY
     Route: 065
  8. VASTAREL [Concomitant]
     Route: 065
  9. BETASERC [Concomitant]
     Dosage: 2UNIT PER DAY
     Route: 065
  10. LEVOTHYROX [Concomitant]
     Dosage: 50MCG PER DAY
     Route: 065
  11. SEROPLEX [Concomitant]
     Dosage: 1UNIT PER DAY
     Route: 065
  12. PANTOPRAZOLE SODIUM [Concomitant]
     Dosage: 1UNIT PER DAY
     Route: 065

REACTIONS (12)
  - ABDOMINAL PAIN [None]
  - ALANINE AMINOTRANSFERASE INCREASED [None]
  - ASPARTATE AMINOTRANSFERASE INCREASED [None]
  - BLOOD ALKALINE PHOSPHATASE INCREASED [None]
  - BLOOD THYROID STIMULATING HORMONE INCREASED [None]
  - C-REACTIVE PROTEIN INCREASED [None]
  - DYSPEPSIA [None]
  - GAMMA-GLUTAMYLTRANSFERASE INCREASED [None]
  - LIPASE INCREASED [None]
  - NAUSEA [None]
  - VENOUS THROMBOSIS [None]
  - VOMITING [None]
